FAERS Safety Report 13156762 (Version 1)
Quarter: 2017Q1

REPORT INFORMATION
  Report Type: Spontaneous
  Country: BR (occurrence: US)
  Receive Date: 20170126
  Receipt Date: 20170126
  Transmission Date: 20170428
  Serious: Yes (Other)
  Sender: FDA-Public Use
  Company Number: BR-JNJCP-30000367715

PATIENT
  Sex: Female

DRUGS (1)
  1. NEUTROGENA OIL FREE ACNE WASH [Suspect]
     Active Substance: SALICYLIC ACID
     Indication: SEBORRHOEA
     Route: 061

REACTIONS (2)
  - Application site swelling [Unknown]
  - Application site exfoliation [Unknown]

NARRATIVE: CASE EVENT DATE: 201607
